FAERS Safety Report 26158936 (Version 1)
Quarter: 2025Q4

REPORT INFORMATION
  Report Type: Report from Study
  Country: US (occurrence: US)
  Receive Date: 20251215
  Receipt Date: 20251215
  Transmission Date: 20260118
  Serious: Yes (Other)
  Sender: ABBVIE
  Company Number: US-ABBVIE-6590207

PATIENT
  Age: 59 Year
  Sex: Male

DRUGS (1)
  1. UBRELVY [Suspect]
     Active Substance: UBROGEPANT
     Indication: Product used for unknown indication
     Route: 050
     Dates: start: 20250301

REACTIONS (1)
  - Disability [Unknown]

NARRATIVE: CASE EVENT DATE: 20250101
